FAERS Safety Report 13085857 (Version 6)
Quarter: 2018Q4

REPORT INFORMATION
  Report Type: Spontaneous
  Country: GB (occurrence: GB)
  Receive Date: 20170104
  Receipt Date: 20181011
  Transmission Date: 20190204
  Serious: Yes (Hospitalization, Other)
  Sender: FDA-Public Use
  Company Number: GB-MYLANLABS-2017M1000081

PATIENT
  Age: 39 Year
  Sex: Male

DRUGS (1)
  1. CLOZARIL [Suspect]
     Active Substance: CLOZAPINE
     Indication: SCHIZOPHRENIA
     Dosage: UNK
     Route: 048
     Dates: start: 20120119, end: 20181004

REACTIONS (7)
  - White blood cell count increased [Recovered/Resolved]
  - Differential white blood cell count abnormal [Not Recovered/Not Resolved]
  - Neutrophil count increased [Recovered/Resolved]
  - Neutrophil count decreased [Recovered/Resolved]
  - White blood cell count decreased [Recovered/Resolved]
  - Malaise [Unknown]
  - Neutropenic sepsis [Unknown]

NARRATIVE: CASE EVENT DATE: 20161228
